FAERS Safety Report 8989296 (Version 1)
Quarter: 2012Q4

REPORT INFORMATION
  Report Type: 
  Country: GB (occurrence: GB)
  Receive Date: 20121227
  Receipt Date: 20121227
  Transmission Date: 20130627
  Serious: Yes (Hospitalization)
  Sender: FDA-Public Use
  Company Number: GB-MYLANLABS-2012S1025868

PATIENT
  Age: 63 Year
  Sex: Female

DRUGS (6)
  1. RISPERIDONE [Suspect]
     Indication: MAJOR DEPRESSION
     Route: 048
     Dates: start: 20121011, end: 20121108
  2. CHLORAMPHENICOL [Concomitant]
     Indication: PRODUCT USED FOR UNKNOWN INDICATION
  3. LAXIDO [Concomitant]
     Indication: PRODUCT USED FOR UNKNOWN INDICATION
  4. MIRTAZAPINE [Concomitant]
     Indication: PRODUCT USED FOR UNKNOWN INDICATION
  5. SENNA [Concomitant]
     Indication: PRODUCT USED FOR UNKNOWN INDICATION
  6. VENLAFAXINE [Concomitant]
     Indication: PRODUCT USED FOR UNKNOWN INDICATION

REACTIONS (3)
  - Antinuclear antibody positive [Unknown]
  - Iron deficiency anaemia [Recovered/Resolved]
  - Parkinsonism [Recovered/Resolved]
